FAERS Safety Report 5652542-9 (Version None)
Quarter: 2008Q1

REPORT INFORMATION
  Report Type: 
  Country: None (occurrence: None)
  Receive Date: 20080305
  Receipt Date: 20080305
  Transmission Date: 20080703
  Serious: Yes (Other)
  Sender: FDA-Public Use
  Company Number: None

PATIENT
  Age: 62 Year
  Sex: Male
  Weight: 88.4514 kg

DRUGS (1)
  1. VYTORIN [Suspect]
     Indication: BLOOD CHOLESTEROL INCREASED
     Dosage: ONE TABLET EACH DAY PO
     Route: 048
     Dates: start: 20060520, end: 20080201

REACTIONS (5)
  - ARTHRALGIA [None]
  - BONE PAIN [None]
  - JOINT CREPITATION [None]
  - JOINT RANGE OF MOTION DECREASED [None]
  - MYALGIA [None]
